FAERS Safety Report 20142795 (Version 2)
Quarter: 2022Q1

REPORT INFORMATION
  Report Type: Spontaneous
  Country: US (occurrence: None)
  Receive Date: 20211202
  Receipt Date: 20220126
  Transmission Date: 20220423
  Serious: Yes (Other)
  Sender: FDA-Public Use
  Company Number: US-ROCHE-2878573

PATIENT
  Sex: Female

DRUGS (2)
  1. LUCENTIS [Suspect]
     Active Substance: RANIBIZUMAB
     Indication: Diabetes mellitus
     Route: 050
  2. METHIMAZOLE [Concomitant]
     Active Substance: METHIMAZOLE
     Route: 065

REACTIONS (2)
  - Eye irritation [Unknown]
  - Blindness [Unknown]
